FAERS Safety Report 9498469 (Version 2)
Quarter: 2013Q4

REPORT INFORMATION
  Report Type: Spontaneous
  Country: US (occurrence: US)
  Receive Date: 20130904
  Receipt Date: 20131028
  Transmission Date: 20140711
  Serious: Yes (Other)
  Sender: FDA-Public Use
  Company Number: US-ROXANE LABORATORIES, INC.-2013-RO-01464RO

PATIENT
  Age: 51 Year
  Sex: Female

DRUGS (2)
  1. MONTELUKAST SODIUM [Suspect]
     Indication: ASTHMA
     Dosage: 10 MG
     Route: 048
     Dates: start: 2013
  2. ALBUTEROL [Concomitant]
     Indication: ASTHMA
     Route: 055

REACTIONS (3)
  - Pharyngeal oedema [Recovered/Resolved]
  - Drug ineffective [Not Recovered/Not Resolved]
  - Product quality issue [Unknown]
